FAERS Safety Report 6034919-5 (Version None)
Quarter: 2009Q1

REPORT INFORMATION
  Report Type: 
  Country: None (occurrence: None)
  Receive Date: 20090112
  Receipt Date: 20090107
  Transmission Date: 20090719
  Serious: Yes (Life-Threatening, Hospitalization)
  Sender: FDA-Public Use
  Company Number: BE-ASTRAZENECA-2008AC03477

PATIENT
  Age: 19260 Day
  Sex: Female
  Weight: 119 kg

DRUGS (4)
  1. ARIMIDEX [Suspect]
     Indication: BREAST CANCER
     Route: 048
     Dates: start: 20050601
  2. CALCIUM [Concomitant]
  3. D-CURE [Concomitant]
  4. SUPRADEN [Concomitant]

REACTIONS (1)
  - CARDIAC FAILURE [None]
